FAERS Safety Report 6509034-4 (Version None)
Quarter: 2009Q4

REPORT INFORMATION
  Report Type: 
  Country: None (occurrence: None)
  Receive Date: 20091221
  Receipt Date: 20090828
  Transmission Date: 20100525
  Serious: No
  Sender: FDA-Public Use
  Company Number: US-ASTRAZENECA-2009SE10451

PATIENT
  Age: 21153 Day
  Sex: Female

DRUGS (7)
  1. CRESTOR [Suspect]
     Route: 048
     Dates: end: 20090826
  2. NEURONTIN [Concomitant]
  3. BACLOFEN [Concomitant]
  4. ROBAXIN [Concomitant]
  5. LORTAB [Concomitant]
  6. PREDNISONE [Concomitant]
  7. NORVASC [Concomitant]

REACTIONS (4)
  - ASTHENIA [None]
  - FALL [None]
  - MYALGIA [None]
  - SUTURE INSERTION [None]
